FAERS Safety Report 15595790 (Version 1)
Quarter: 2018Q4

REPORT INFORMATION
  Report Type: Report from Study
  Country: None (occurrence: FR)
  Receive Date: 20181105
  Receipt Date: 20181105
  Transmission Date: 20190205
  Serious: Yes (Other)
  Sender: FDA-Public Use
  Company Number: FR-BIOVITRUM-2011FR0387

PATIENT
  Sex: Female
  Weight: 54 kg

DRUGS (2)
  1. ORFADIN [Suspect]
     Active Substance: NITISINONE
     Dates: start: 20151126
  2. ORFADIN [Suspect]
     Active Substance: NITISINONE
     Indication: TYROSINAEMIA
     Dates: start: 20050720

REACTIONS (3)
  - Amino acid level increased [Recovering/Resolving]
  - Succinylacetone increased [Unknown]
  - Neoplasm malignant [Unknown]
